FAERS Safety Report 24280190 (Version 1)
Quarter: 2024Q3

REPORT INFORMATION
  Report Type: Spontaneous
  Country: US (occurrence: US)
  Receive Date: 20240904
  Receipt Date: 20240904
  Transmission Date: 20241017
  Serious: No
  Sender: GLAXOSMITHKLINE
  Company Number: US-GSKCCFUS-Case-02089696_AE-115466

PATIENT
  Sex: Female

DRUGS (1)
  1. NUCALA [Suspect]
     Active Substance: MEPOLIZUMAB
     Indication: Product used for unknown indication
     Dosage: UNK UNK, Q4W
     Route: 058
     Dates: start: 202405

REACTIONS (3)
  - Nightmare [Not Recovered/Not Resolved]
  - Disease recurrence [Unknown]
  - Drug ineffective [Unknown]
